FAERS Safety Report 7377268-5 (Version None)
Quarter: 2011Q1

REPORT INFORMATION
  Report Type: 
  Country: None (occurrence: None)
  Receive Date: 20110328
  Receipt Date: 20091226
  Transmission Date: 20110831
  Serious: Yes (Death, Hospitalization, Other)
  Sender: FDA-Public Use
  Company Number: US-BAYER-200943566NA

PATIENT
  Sex: Female
  Weight: 68.027 kg

DRUGS (35)
  1. VERSED [Concomitant]
     Dosage: 141 MG, UNK
     Route: 042
     Dates: start: 20030328, end: 20030328
  2. GENTAMICIN [Concomitant]
     Dosage: 90 MG, UNK
     Route: 042
     Dates: start: 20030327, end: 20030327
  3. ZEMURON [Concomitant]
     Dosage: MCG/MIN
     Route: 042
     Dates: start: 20030328, end: 20030328
  4. EPHEDRINE [Concomitant]
     Dosage: 30 MG, UNK
     Route: 042
     Dates: start: 20030328, end: 20030405
  5. EPHEDRINE [Concomitant]
     Dosage: 3.6 MCG/KG/MIN
     Dates: start: 20030328
  6. HEPARIN [Concomitant]
     Dosage: 38000 U, UNK
     Route: 042
     Dates: start: 20030328, end: 20030328
  7. BLOOD AND RELATED PRODUCTS [Concomitant]
     Dosage: 4 U, UNK
     Dates: start: 20030328
  8. PROTONIX [Concomitant]
     Dosage: DAILY DOSE 40 MG
     Dates: start: 20030325, end: 20030301
  9. ATENOLOL [Concomitant]
     Dosage: 100 MG, QD
     Route: 048
     Dates: start: 20030325, end: 20030327
  10. ATIVAN [Concomitant]
     Dosage: 0.5 MG AS NEEDED
     Route: 048
     Dates: start: 20030325, end: 20030327
  11. DEMEROL [Concomitant]
     Dosage: 50 MG, UNK
     Route: 042
     Dates: start: 20030325, end: 20030325
  12. CEFAZOLIN [Concomitant]
     Dosage: 1 G, UNK
     Route: 042
     Dates: start: 20030328, end: 20030328
  13. DOPAMINE [Concomitant]
     Dosage: 2 MCG/KG/MIN
     Route: 042
     Dates: start: 20030328, end: 20030328
  14. PROTAMINE SULFATE [Concomitant]
     Dosage: 400 MG, UNK
     Route: 042
     Dates: start: 20030328, end: 20030328
  15. CONTRAST MEDIA [Concomitant]
     Indication: CATHETERISATION CARDIAC
     Dosage: UNK
     Dates: start: 20030325
  16. NIPRIDE [Concomitant]
     Dosage: 0.24 MCG/KG/MIN
     Dates: start: 20030328
  17. POTASSIUM CHLORIDE [Concomitant]
     Dosage: 10 MEQ, UNK
     Dates: start: 20030325, end: 20030327
  18. TRASYLOL [Suspect]
     Indication: AORTIC VALVE REPLACEMENT
     Dosage: 200 ML, CARDIOPULMONARY BYPASS
     Route: 042
     Dates: start: 20030328, end: 20030328
  19. PROZAC [Concomitant]
     Dosage: 10 MG, QD
     Route: 048
     Dates: start: 20030325, end: 20030327
  20. AMPICILLIN [Concomitant]
     Dosage: 2 G, UNK
     Route: 042
     Dates: start: 20030327, end: 20030327
  21. TRASYLOL [Suspect]
     Indication: MITRAL VALVE REPLACEMENT
  22. LASIX [Concomitant]
     Dosage: 40 MG, QD
     Route: 048
     Dates: start: 20030325, end: 20030327
  23. MUCOMYST [Concomitant]
     Dosage: 600 MG, ONCE
     Route: 048
     Dates: start: 20030325, end: 20030325
  24. VERSED [Concomitant]
     Dosage: 5 MG, UNK
     Route: 042
     Dates: start: 20030325, end: 20030325
  25. AMIODARONE HCL [Concomitant]
     Dosage: 300 MG, UNK
     Route: 042
     Dates: start: 20030328, end: 20030328
  26. BEXTRA [Concomitant]
     Dosage: 40 MG, QD
     Route: 048
     Dates: start: 20030325, end: 20030327
  27. LOPRESSOR [Concomitant]
     Dosage: 25 MG, BID
     Route: 048
     Dates: start: 20030325, end: 20030327
  28. PRIMACOR [Concomitant]
     Dosage: 10 MCG/KG/MIN
     Route: 042
     Dates: start: 20030328, end: 20030328
  29. TRASYLOL [Suspect]
     Indication: CARDIOPULMONARY BYPASS
  30. NITROGLYCERIN [Concomitant]
     Dosage: AS NEEDED FOR CHEST PAIN
     Route: 048
     Dates: start: 20030325, end: 20030327
  31. CERETEC [TECHNETIUM TC 99M EXAMETAZINE] [Concomitant]
     Indication: CATHETERISATION CARDIAC
     Dosage: UNK
     Dates: start: 20030318
  32. UNCODEABLE ^UNCLASSIFIABLE^ [Concomitant]
     Dosage: UNK
     Dates: start: 20030325
  33. ZYRTEC [Concomitant]
     Dosage: DAILY DOSE 10 MG
     Route: 048
     Dates: start: 20030325, end: 20030327
  34. PAXIL [Concomitant]
     Dosage: 10 MG, QD
     Route: 048
     Dates: start: 20030325, end: 20030327
  35. PHENYLEPHRINE [Concomitant]
     Dosage: 10 ML, UNK
     Route: 042
     Dates: start: 20030328, end: 20030328

REACTIONS (6)
  - RENAL INJURY [None]
  - INJURY [None]
  - RENAL FAILURE [None]
  - PAIN [None]
  - DEATH [None]
  - UNEVALUABLE EVENT [None]
